FAERS Safety Report 5835657-1 (Version None)
Quarter: 2008Q3

REPORT INFORMATION
  Report Type: 
  Country: None (occurrence: None)
  Receive Date: 20080806
  Receipt Date: 20080729
  Transmission Date: 20090109
  Serious: Yes (Other)
  Sender: FDA-Public Use
  Company Number: US-PURDUE-USA_2008_0034217

PATIENT
  Sex: Female

DRUGS (1)
  1. OXYCONTIN [Suspect]
     Indication: PAIN
     Dosage: 30 MG, SEE TEXT

REACTIONS (5)
  - DRUG HYPERSENSITIVITY [None]
  - PYREXIA [None]
  - RASH GENERALISED [None]
  - THROAT TIGHTNESS [None]
  - TINNITUS [None]
